FAERS Safety Report 21027266 (Version 1)
Quarter: 2022Q2

REPORT INFORMATION
  Report Type: Spontaneous
  Country: CN (occurrence: CN)
  Receive Date: 20220630
  Receipt Date: 20220630
  Transmission Date: 20220721
  Serious: Yes (Other)
  Sender: FDA-Public Use
  Company Number: None

PATIENT
  Age: 38 Year
  Sex: Female
  Weight: 46.5 kg

DRUGS (8)
  1. CYCLOPHOSPHAMIDE [Suspect]
     Active Substance: CYCLOPHOSPHAMIDE
     Indication: Metastases to lymph nodes
     Dosage: 800 MG ONCE DAILY,CYCLOPHOSPHAMIDE (800 MG) + 0.9% SODIUM CHLORIDE (100 ML)
     Route: 041
     Dates: start: 20220607, end: 20220607
  2. CYCLOPHOSPHAMIDE [Suspect]
     Active Substance: CYCLOPHOSPHAMIDE
     Indication: Breast cancer female
     Dosage: UNK, QD, DOSE RE INTRODUCED, CYCLOPHOSPHAMIDE + 0.9% SODIUM CHLORIDE
     Route: 041
  3. SODIUM CHLORIDE [Suspect]
     Active Substance: SODIUM CHLORIDE
     Indication: Medication dilution
     Dosage: 100 ML, QD,CYCLOPHOSPHAMIDE (800 MG) + 0.9% SODIUM CHLORIDE (100 ML)
     Route: 041
     Dates: start: 20220607, end: 20220607
  4. SODIUM CHLORIDE [Suspect]
     Active Substance: SODIUM CHLORIDE
     Dosage: UNK, QD, DOSE RE INTRODUCED, CYCLOPHOSPHAMIDE + 0.9% SODIUM CHLORIDE
     Route: 041
  5. SODIUM CHLORIDE [Suspect]
     Active Substance: SODIUM CHLORIDE
     Dosage: 500 ML,QD, EPIRUBICIN HYDROCHLORIDE (130 MG) + 0.9% SODIUM CHLORIDE (500 ML)
     Route: 041
     Dates: start: 20220607, end: 20220607
  6. SODIUM CHLORIDE [Suspect]
     Active Substance: SODIUM CHLORIDE
     Dosage: UNK,QD, DOSE RE INTRODUCED,EPIRUBICIN HYDROCHLORIDE + 0.9% SODIUM CHLORIDE
     Route: 041
  7. EPIRUBICIN [Suspect]
     Active Substance: EPIRUBICIN
     Indication: Metastases to lymph nodes
     Dosage: 130 MG ONCE DAILY,EPIRUBICIN HYDROCHLORIDE (130 MG) + 0.9% SODIUM CHLORIDE (500 ML)
     Route: 041
     Dates: start: 20220607, end: 20220607
  8. EPIRUBICIN [Suspect]
     Active Substance: EPIRUBICIN
     Indication: Breast cancer female
     Dosage: UNK, QD, DOSE RE INTRODUCED, EPIRUBICIN HYDROCHLORIDE + 0.9% SODIUM CHLORIDE
     Route: 041

REACTIONS (2)
  - Myelosuppression [Recovering/Resolving]
  - Chills [Recovering/Resolving]

NARRATIVE: CASE EVENT DATE: 20220612
